FAERS Safety Report 19888602 (Version 1)
Quarter: 2021Q3

REPORT INFORMATION
  Report Type: Spontaneous
  Country: US (occurrence: US)
  Receive Date: 20210927
  Receipt Date: 20210927
  Transmission Date: 20211014
  Serious: No
  Sender: FDA-Public Use
  Company Number: None

PATIENT
  Age: 86 Year
  Sex: Male
  Weight: 72 kg

DRUGS (21)
  1. FENOFIBRATE. [Concomitant]
     Active Substance: FENOFIBRATE
  2. SUCRALFATE. [Concomitant]
     Active Substance: SUCRALFATE
  3. TAMSULOSIN [Concomitant]
     Active Substance: TAMSULOSIN
  4. ESOMEPRAZOLE MAGNESIUM. [Concomitant]
     Active Substance: ESOMEPRAZOLE MAGNESIUM
  5. FUROSEMIDE. [Concomitant]
     Active Substance: FUROSEMIDE
  6. NIFEDIPINE. [Concomitant]
     Active Substance: NIFEDIPINE
  7. GLIPIZIDE XL [Concomitant]
     Active Substance: GLIPIZIDE
  8. METOPROLOL TARTRATE. [Concomitant]
     Active Substance: METOPROLOL TARTRATE
  9. MIDODRINE [Concomitant]
     Active Substance: MIDODRINE
  10. ONDANSETRON [Concomitant]
     Active Substance: ONDANSETRON
  11. VALACYCLOVIR ?SUBSTITUTED FOR VALTREX [Suspect]
     Active Substance: VALACYCLOVIR HYDROCHLORIDE
     Indication: HERPES ZOSTER
     Dosage: ?          QUANTITY:1 TABLET(S);?
     Route: 048
     Dates: start: 20210923, end: 20210923
  12. HYDRALAZINE [Concomitant]
     Active Substance: HYDRALAZINE HYDROCHLORIDE
  13. LEVOTHYROXINE. [Concomitant]
     Active Substance: LEVOTHYROXINE
  14. LIOTHYRONINE [Concomitant]
     Active Substance: LIOTHYRONINE
  15. MIRCERA [Concomitant]
     Active Substance: METHOXY POLYETHYLENE GLYCOL-EPOETIN BETA
  16. FOLIC ACID. [Concomitant]
     Active Substance: FOLIC ACID
  17. OPDIVO [Concomitant]
     Active Substance: NIVOLUMAB
  18. POTASSIUM CL [Concomitant]
     Active Substance: POTASSIUM CHLORIDE
  19. FERROUS SULFATE. [Concomitant]
     Active Substance: FERROUS SULFATE
  20. NITROGLYCERIN. [Concomitant]
     Active Substance: NITROGLYCERIN
  21. RENAPLEXD [Concomitant]

REACTIONS (8)
  - Disorientation [None]
  - Dyskinesia [None]
  - Mood altered [None]
  - Speech disorder [None]
  - Hallucination [None]
  - Insomnia [None]
  - Dysarthria [None]
  - Confusional state [None]

NARRATIVE: CASE EVENT DATE: 20210924
